FAERS Safety Report 6283238-0 (Version None)
Quarter: 2009Q3

REPORT INFORMATION
  Report Type: 
  Country: None (occurrence: None)
  Receive Date: 20090724
  Receipt Date: 20090714
  Transmission Date: 20100115
  Serious: Yes (Life-Threatening)
  Sender: FDA-Public Use
  Company Number: JP-ABBOTT-09P-087-0586745-00

PATIENT
  Age: 73 Year
  Sex: Male

DRUGS (9)
  1. LEUPLIN SR FOR INJECTION 11.25 MG [Suspect]
     Indication: PROSTATE CANCER STAGE II
     Route: 058
     Dates: start: 20060313, end: 20070814
  2. TAKEPRON [Concomitant]
     Indication: GASTRIC ULCER
     Route: 048
     Dates: start: 20070604, end: 20070805
  3. ALOSENN [Concomitant]
     Indication: CONSTIPATION
     Route: 048
     Dates: start: 20060403, end: 20070810
  4. THEOLONG [Concomitant]
     Indication: EMPHYSEMA
     Route: 048
     Dates: start: 20060403
  5. ACINON [Concomitant]
     Indication: REFLUX OESOPHAGITIS
     Route: 048
     Dates: end: 20070625
  6. SUPIRIVA [Concomitant]
     Indication: EMPHYSEMA
     Dates: start: 20060403, end: 20070810
  7. MUCODYNE [Concomitant]
     Indication: EMPHYSEMA
     Route: 048
     Dates: start: 20060403
  8. HOKUNALIN [Concomitant]
     Indication: EMPHYSEMA
     Dosage: TAPE
     Route: 062
     Dates: start: 20060403
  9. THEO-DUR [Concomitant]
     Indication: EMPHYSEMA
     Route: 048
     Dates: start: 20070319, end: 20070811

REACTIONS (1)
  - WHITE BLOOD CELL COUNT INCREASED [None]
